FAERS Safety Report 25926598 (Version 2)
Quarter: 2025Q4

REPORT INFORMATION
  Report Type: Spontaneous
  Country: US (occurrence: US)
  Receive Date: 20251015
  Receipt Date: 20251024
  Transmission Date: 20260118
  Serious: Yes (Hospitalization)
  Sender: BRISTOL-MYERS SQUIBB COMPANY
  Company Number: US-BRISTOL-MYERS SQUIBB COMPANY-2025-140743

PATIENT
  Age: 87 Year
  Sex: Male

DRUGS (1)
  1. LENALIDOMIDE [Suspect]
     Active Substance: LENALIDOMIDE
     Indication: Herpes zoster
     Dosage: TAKE 1 CAPSULE BY MOUTH EVERY DAY FOR THE FIRST 21 DAYS OF EACH 28-DAYS CYCLE

REACTIONS (2)
  - Heart rate decreased [Recovered/Resolved]
  - Fatigue [Recovered/Resolved]
